FAERS Safety Report 7352459-8 (Version None)
Quarter: 2011Q1

REPORT INFORMATION
  Report Type: 
  Country: None (occurrence: None)
  Receive Date: 20110301
  Receipt Date: 20101123
  Transmission Date: 20110831
  Serious: No
  Sender: FDA-Public Use
  Company Number: MC201000383

PATIENT
  Age: 9 Year
  Sex: Male
  Weight: 31 kg

DRUGS (1)
  1. CLEVIPREX [Suspect]
     Dosage: 1 UG/KG, MIN, 1-2 UG/KG/MKIN

REACTIONS (1)
  - TACHYCARDIA [None]
